FAERS Safety Report 5583706-0 (Version None)
Quarter: 2008Q1

REPORT INFORMATION
  Report Type: 
  Country: None (occurrence: None)
  Receive Date: 20080103
  Receipt Date: 20071227
  Transmission Date: 20080703
  Serious: Yes (Other)
  Sender: FDA-Public Use
  Company Number: CHPA2007US14454

PATIENT
  Age: 21 Year
  Sex: Female

DRUGS (2)
  1. THERAFLU NIGHTTIME SEVERE COLD WARMING SYRUP (NCH)(PARACETAMOL, DIPHEN [Suspect]
     Indication: COUGH
     Dosage: ORAL
     Route: 048
     Dates: start: 20071224
  2. ANTIEPILEPTICS (NO INGREDIENTS/ SUBSTANCES) [Concomitant]

REACTIONS (1)
  - EPILEPSY [None]
